FAERS Safety Report 4596285-1 (Version None)
Quarter: 2005Q1

REPORT INFORMATION
  Report Type: 
  Country: None (occurrence: None)
  Receive Date: 20050302
  Receipt Date: 20040112
  Transmission Date: 20050727
  Serious: Yes (Disabling)
  Sender: FDA-Public Use
  Company Number: US-MERCK-0401USA00805

PATIENT
  Age: 74 Year
  Sex: Male

DRUGS (5)
  1. FOSAMAX [Suspect]
     Indication: OSTEOPOROSIS
     Route: 048
     Dates: start: 20000101
  2. FOSAMAX [Suspect]
     Route: 048
     Dates: start: 19990101, end: 20000101
  3. FOSAMAX [Suspect]
     Route: 048
     Dates: start: 20040101
  4. MEDROL [Concomitant]
     Route: 065
  5. ARAVA [Concomitant]
     Route: 065

REACTIONS (6)
  - CHEST PAIN [None]
  - DRUG INEFFECTIVE [None]
  - DYSPEPSIA [None]
  - ELECTROCARDIOGRAM ABNORMAL [None]
  - FATIGUE [None]
  - FEELING ABNORMAL [None]
